FAERS Safety Report 22320235 (Version 1)
Quarter: 2023Q2

REPORT INFORMATION
  Report Type: Report from Study
  Country: US (occurrence: US)
  Receive Date: 20230515
  Receipt Date: 20230515
  Transmission Date: 20230721
  Serious: Yes (Hospitalization, Other)
  Sender: FDA-Public Use
  Company Number: US-BAUSCH-BL-2023-007170

PATIENT
  Age: 61 Year
  Sex: Male

DRUGS (2)
  1. XIFAXAN [Suspect]
     Active Substance: RIFAXIMIN
     Indication: Hepatic encephalopathy
     Dosage: STARTED 2 AND HALF MONTH AGO
     Route: 048
     Dates: start: 2023
  2. OZEMPIC [Concomitant]
     Active Substance: SEMAGLUTIDE
     Indication: Product used for unknown indication

REACTIONS (11)
  - Respiratory syncytial virus infection [Unknown]
  - Cystitis [Unknown]
  - Fall [Recovered/Resolved]
  - Gastrointestinal infection [Unknown]
  - Obstruction [Unknown]
  - Pain [Unknown]
  - Influenza [Unknown]
  - Flatulence [Unknown]
  - Feeding disorder [Unknown]
  - Weight decreased [Unknown]
  - Diarrhoea [Unknown]

NARRATIVE: CASE EVENT DATE: 20230101
